FAERS Safety Report 7002991-1 (Version None)
Quarter: 2010Q3

REPORT INFORMATION
  Report Type: 
  Country: None (occurrence: None)
  Receive Date: 20100920
  Receipt Date: 20100504
  Transmission Date: 20110219
  Serious: Yes (Hospitalization)
  Sender: FDA-Public Use
  Company Number: US-ASTRAZENECA-2010SE10657

PATIENT
  Age: 30 Year
  Sex: Female
  Weight: 93 kg

DRUGS (9)
  1. SEROQUEL [Suspect]
     Indication: BIPOLAR DISORDER
     Route: 048
     Dates: start: 20050101, end: 20090701
  2. SEROQUEL [Suspect]
     Route: 048
     Dates: start: 20100218, end: 20100307
  3. SEROQUEL [Suspect]
     Route: 048
     Dates: start: 20100218, end: 20100307
  4. PROZAC [Concomitant]
  5. PROMITHIZANE [Concomitant]
  6. ALBUTEROL [Concomitant]
  7. PROTONIX [Concomitant]
  8. CLONOPIN [Concomitant]
  9. PROPYLTHIOURACIL [Concomitant]

REACTIONS (4)
  - AGITATION [None]
  - DRUG DOSE OMISSION [None]
  - INSOMNIA [None]
  - PNEUMONIA [None]
